FAERS Safety Report 21924691 (Version 1)
Quarter: 2023Q1

REPORT INFORMATION
  Report Type: Spontaneous
  Country: AU (occurrence: AU)
  Receive Date: 20230130
  Receipt Date: 20230130
  Transmission Date: 20230418
  Serious: Yes (Hospitalization, Other)
  Sender: FDA-Public Use
  Company Number: None

PATIENT
  Age: 52 Year
  Sex: Female

DRUGS (6)
  1. PREDNISONE [Suspect]
     Active Substance: PREDNISONE
     Indication: COVID-19
     Route: 065
  2. PREDNISONE [Suspect]
     Active Substance: PREDNISONE
     Indication: Off label use
  3. IVERMECTIN [Concomitant]
     Active Substance: IVERMECTIN
     Indication: COVID-19
     Route: 065
  4. FLUVOXAMINE [Concomitant]
     Active Substance: FLUVOXAMINE
     Indication: COVID-19
     Route: 065
  5. QUERCETIN [Concomitant]
     Active Substance: QUERCETIN
     Indication: COVID-19
     Route: 065
  6. DOXYCYCLINE [Concomitant]
     Active Substance: DOXYCYCLINE
     Indication: COVID-19
     Route: 065

REACTIONS (3)
  - Delirium [Recovered/Resolved]
  - Psychotic disorder [Recovered/Resolved]
  - Product use in unapproved indication [Unknown]
